FAERS Safety Report 6253613-9 (Version None)
Quarter: 2009Q3

REPORT INFORMATION
  Report Type: 
  Country: None (occurrence: None)
  Receive Date: 20090701
  Receipt Date: 20090429
  Transmission Date: 20100115
  Serious: Yes (Hospitalization, Other)
  Sender: FDA-Public Use
  Company Number: FR-PFIZER INC-2009232725

PATIENT
  Age: 72 Year

DRUGS (6)
  1. ATARAX [Suspect]
     Dosage: 25 MG, 1X/DAY
     Route: 048
     Dates: end: 20090306
  2. COLCHIMAX [Suspect]
     Dosage: 1 DF, UNK
     Route: 048
     Dates: end: 20090306
  3. ZANIDIP [Suspect]
     Dosage: 10 MG, UNK
     Route: 048
     Dates: end: 20090306
  4. HYTACAND [Suspect]
     Dosage: 1 DF, UNK
     Route: 048
     Dates: end: 20090306
  5. ALLOPURINOL [Suspect]
     Dosage: 100 MG, UNK
     Route: 048
     Dates: end: 20090306
  6. LASIX [Suspect]
     Dosage: 60 MG, UNK
     Route: 048
     Dates: end: 20090306

REACTIONS (7)
  - DIARRHOEA [None]
  - DYSPEPSIA [None]
  - GENERAL PHYSICAL HEALTH DETERIORATION [None]
  - INFLAMMATION [None]
  - RENAL FAILURE CHRONIC [None]
  - RHABDOMYOLYSIS [None]
  - VOMITING [None]
